FAERS Safety Report 11861116 (Version 1)
Quarter: 2015Q4

REPORT INFORMATION
  Report Type: Spontaneous
  Country: US (occurrence: US)
  Receive Date: 20151222
  Receipt Date: 20151222
  Transmission Date: 20160305
  Serious: No
  Sender: FDA-Public Use
  Company Number: US-AVANIR PHARMACEUTICALS, INC.-2011NUEUSA00009

PATIENT
  Age: 62 Year
  Sex: Female
  Weight: 87.54 kg

DRUGS (6)
  1. NUEDEXTA [Suspect]
     Active Substance: DEXTROMETHORPHAN HYDROBROMIDE\QUINIDINE SULFATE
     Indication: AFFECT LABILITY
     Dosage: UNK, UNK
     Route: 048
     Dates: start: 2011, end: 20110419
  2. BACLOFEN. [Concomitant]
     Active Substance: BACLOFEN
  3. TUSSIONEX PENNKINETIC [Concomitant]
     Active Substance: CHLORPHENIRAMINE\HYDROCODONE
  4. IBUPROFEN. [Concomitant]
     Active Substance: IBUPROFEN
  5. CALCIUM [Concomitant]
     Active Substance: CALCIUM
  6. VITAMIN D [Concomitant]
     Active Substance: CHOLECALCIFEROL

REACTIONS (4)
  - Lip swelling [Unknown]
  - Dyspnoea [Recovered/Resolved]
  - Peripheral swelling [Unknown]
  - Swollen tongue [Recovered/Resolved]

NARRATIVE: CASE EVENT DATE: 2011
